FAERS Safety Report 17860614 (Version 1)
Quarter: 2020Q2

REPORT INFORMATION
  Report Type: Spontaneous
  Country: US (occurrence: US)
  Receive Date: 20200604
  Receipt Date: 20200604
  Transmission Date: 20200714
  Serious: No
  Sender: FDA-Public Use
  Company Number: None

PATIENT
  Age: 57 Year
  Sex: Female

DRUGS (1)
  1. CHANTIX [Suspect]
     Active Substance: VARENICLINE TARTRATE
     Indication: SMOKING CESSATION THERAPY
     Route: 048
     Dates: start: 20200512, end: 20200603

REACTIONS (4)
  - Anger [None]
  - Emotional disorder [None]
  - Impatience [None]
  - Behaviour disorder [None]

NARRATIVE: CASE EVENT DATE: 20200519
